FAERS Safety Report 11162375 (Version 1)
Quarter: 2015Q2

REPORT INFORMATION
  Report Type: Spontaneous
  Country: US (occurrence: US)
  Receive Date: 20150604
  Receipt Date: 20150604
  Transmission Date: 20150821
  Serious: No
  Sender: FDA-Public Use
  Company Number: US-SA-2014SA136030

PATIENT
  Age: 75 Year
  Sex: Male

DRUGS (2)
  1. SOLOSTAR [Suspect]
     Active Substance: DEVICE
     Indication: TYPE 2 DIABETES MELLITUS
     Dosage: FREQUENCY: UPTO 3 TIMES DAILY
     Dates: start: 2010
  2. LANTUS SOLOSTAR [Suspect]
     Active Substance: INSULIN GLARGINE
     Indication: TYPE 2 DIABETES MELLITUS
     Dosage: DOSE: SLIDING SCALE 14+U?FREQUENCY: UPTO 3  TIMES
     Route: 065
     Dates: start: 2010

REACTIONS (3)
  - Injury associated with device [Unknown]
  - Visual impairment [Unknown]
  - Drug administration error [Unknown]
